FAERS Safety Report 6355397-2 (Version None)
Quarter: 2009Q3

REPORT INFORMATION
  Report Type: 
  Country: None (occurrence: None)
  Receive Date: 20090914
  Receipt Date: 20090901
  Transmission Date: 20100115
  Serious: Yes (Hospitalization)
  Sender: FDA-Public Use
  Company Number: US-ABBOTT-09P-163-0594924-00

PATIENT
  Sex: Male
  Weight: 97.156 kg

DRUGS (7)
  1. HUMIRA [Suspect]
     Indication: RHEUMATOID ARTHRITIS
     Dates: start: 20080801, end: 20090401
  2. HUMIRA [Suspect]
     Dates: start: 20090601
  3. METHOTREXATE [Suspect]
     Indication: RHEUMATOID ARTHRITIS
     Dates: end: 20090401
  4. CRESTOR [Concomitant]
     Indication: BLOOD CHOLESTEROL INCREASED
     Dates: start: 20090801
  5. NITROGLYCERIN [Concomitant]
     Indication: CHEST PAIN
     Dates: start: 20090801
  6. FLUOXETINE [Concomitant]
     Indication: DEPRESSION
  7. FOLIC ACID [Concomitant]
     Indication: RHEUMATOID ARTHRITIS

REACTIONS (10)
  - CORONARY ARTERY OCCLUSION [None]
  - EAR DISCOMFORT [None]
  - FATIGUE [None]
  - LABORATORY TEST ABNORMAL [None]
  - MUSCULOSKELETAL PAIN [None]
  - MYOCARDIAL INFARCTION [None]
  - PAIN IN EXTREMITY [None]
  - PAIN IN JAW [None]
  - RHEUMATOID ARTHRITIS [None]
  - THROAT IRRITATION [None]
